FAERS Safety Report 20041648 (Version 1)
Quarter: 2021Q4

REPORT INFORMATION
  Report Type: Spontaneous
  Country: GB (occurrence: GB)
  Receive Date: 20211108
  Receipt Date: 20211108
  Transmission Date: 20220303
  Serious: Yes (Hospitalization, Other)
  Sender: FDA-Public Use
  Company Number: GB-CELLTRION INC.-2021GB014867

PATIENT

DRUGS (3)
  1. INFLIXIMAB [Suspect]
     Active Substance: INFLIXIMAB
     Indication: Inflammatory bowel disease
     Dosage: 120 MG AT WEEK 0, WEEK 2, AND WEEK 6, FOLLOWED BY AN EIGHT-WEEKLY REGIME
     Dates: start: 201209, end: 201506
  2. INFLIXIMAB [Suspect]
     Active Substance: INFLIXIMAB
     Dosage: FIRST TWO LOADING DOSES ADMINISTERED AT WEEK 0 AND WEEK 2
  3. VEDOLIZUMAB [Suspect]
     Active Substance: VEDOLIZUMAB
     Indication: Inflammatory bowel disease

REACTIONS (7)
  - Dermatitis acneiform [Recovering/Resolving]
  - Crohn^s disease [Unknown]
  - Colitis [Unknown]
  - Frequent bowel movements [Unknown]
  - Haematochezia [Unknown]
  - Mouth ulceration [Unknown]
  - Therapy change [Unknown]

NARRATIVE: CASE EVENT DATE: 20190301
